FAERS Safety Report 16042509 (Version 1)
Quarter: 2019Q1

REPORT INFORMATION
  Report Type: Spontaneous
  Country: ES (occurrence: ES)
  Receive Date: 20190306
  Receipt Date: 20190306
  Transmission Date: 20190418
  Serious: Yes (Hospitalization)
  Sender: FDA-Public Use
  Company Number: ES-BAUSCH-BL-2019-006801

PATIENT
  Age: 57 Year
  Sex: Female

DRUGS (1)
  1. PREDNICARBATE. [Suspect]
     Active Substance: PREDNICARBATE
     Indication: ECZEMA
     Route: 061
     Dates: start: 20190124, end: 20190127

REACTIONS (1)
  - Swelling face [Recovering/Resolving]

NARRATIVE: CASE EVENT DATE: 20190128
